FAERS Safety Report 7997614-9 (Version None)
Quarter: 2011Q4

REPORT INFORMATION
  Report Type: 
  Country: None (occurrence: None)
  Receive Date: 20111221
  Receipt Date: 20111216
  Transmission Date: 20120403
  Serious: Yes (Death, Other)
  Sender: FDA-Public Use
  Company Number: JP-JNJFOC-20110610485

PATIENT
  Sex: Male

DRUGS (14)
  1. SEROQUEL [Suspect]
     Indication: MENTAL DISABILITY
     Route: 048
     Dates: start: 20100125, end: 20100529
  2. CLONAZEPAM [Concomitant]
     Indication: EPILEPSY
     Route: 048
     Dates: start: 20080509, end: 20100531
  3. LONASEN [Concomitant]
     Route: 048
     Dates: start: 20080928, end: 20100531
  4. ADONA [Concomitant]
     Route: 050
     Dates: start: 20100520, end: 20100613
  5. TRANEXAMIC ACID [Concomitant]
     Route: 050
     Dates: start: 20100520, end: 20100613
  6. TOPIRAMATE [Suspect]
     Route: 048
     Dates: start: 20100423, end: 20100427
  7. ZYPREXA [Suspect]
     Indication: MENTAL DISABILITY
     Route: 048
     Dates: start: 20090329, end: 20100531
  8. CARBAMAZEPINE [Concomitant]
     Indication: EPILEPSY
     Route: 048
     Dates: start: 20080401, end: 20100531
  9. TOPIRAMATE [Suspect]
     Route: 048
     Dates: start: 20100418, end: 20100422
  10. RISPERDAL [Concomitant]
     Route: 030
     Dates: start: 20100323, end: 20100512
  11. TOPIRAMATE [Suspect]
     Indication: EPILEPSY
     Route: 048
     Dates: start: 20100514, end: 20100529
  12. TOPIRAMATE [Suspect]
     Route: 048
     Dates: start: 20100428, end: 20100513
  13. FERROUS CITRATE [Concomitant]
     Route: 048
     Dates: start: 20081101, end: 20100531
  14. LAC-B [Concomitant]
     Route: 050
     Dates: start: 20100520, end: 20100613

REACTIONS (5)
  - ALTERED STATE OF CONSCIOUSNESS [None]
  - LIVER DISORDER [None]
  - PNEUMONIA [None]
  - SHOCK [None]
  - HYPOGLYCAEMIA [None]
